FAERS Safety Report 4358659-3 (Version None)
Quarter: 2004Q2

REPORT INFORMATION
  Report Type: 
  Country: None (occurrence: None)
  Receive Date: 20040511
  Receipt Date: 20040422
  Transmission Date: 20050107
  Serious: Yes (Disabling)
  Sender: FDA-Public Use
  Company Number: 2004-DE-02560GD

PATIENT
  Age: 55 Year
  Sex: Male

DRUGS (3)
  1. PRAMIPEXOLE (PRAMIPEXOLE DIHYDROCHLORIDE) [Suspect]
     Indication: PARKINSON'S DISEASE
     Dosage: 3 MG
  2. SINEMET [Suspect]
     Indication: PARKINSON'S DISEASE
     Dosage: 900 MG LEVODOPA
  3. MODAFINIL [Suspect]
     Indication: SEDATION
     Dosage: 100 MG

REACTIONS (4)
  - DEPRESSION [None]
  - LOSS OF EMPLOYMENT [None]
  - MARITAL PROBLEM [None]
  - PATHOLOGICAL GAMBLING [None]
